FAERS Safety Report 24179141 (Version 3)
Quarter: 2025Q3

REPORT INFORMATION
  Report Type: Report from Study
  Country: US (occurrence: US)
  Receive Date: 20240806
  Receipt Date: 20250804
  Transmission Date: 20251021
  Serious: Yes (Death, Life-Threatening, Hospitalization, Other)
  Sender: ALEXION PHARMACEUTICALS
  Company Number: 2024A177778

PATIENT
  Age: 79 Year
  Sex: Male
  Weight: 87 kg

DRUGS (19)
  1. PRILOSEC [Suspect]
     Active Substance: OMEPRAZOLE MAGNESIUM
  2. METOPROLOL TARTRATE [Suspect]
     Active Substance: METOPROLOL TARTRATE
  3. CABAZITAXEL [Suspect]
     Active Substance: CABAZITAXEL
     Indication: Adenocarcinoma metastatic
     Dosage: 30 MILLIGRAM, Q3W
     Dates: start: 20231107, end: 20231107
  4. CARBOPLATIN [Suspect]
     Active Substance: CARBOPLATIN
     Dosage: 290 MILLIGRAM, Q3W
     Dates: start: 20231107, end: 20231107
  5. VUDALIMAB [Suspect]
     Active Substance: VUDALIMAB
  6. LEUPROLIDE [Concomitant]
     Active Substance: LEUPROLIDE
  7. DENOSUMAB [Concomitant]
     Active Substance: DENOSUMAB
  8. ASPIRIN [Concomitant]
     Active Substance: ASPIRIN
  9. CYCLOBENZAPRINE [Concomitant]
     Active Substance: CYCLOBENZAPRINE
  10. PREDNISONE [Concomitant]
     Active Substance: PREDNISONE
  11. ZOFRAN [Concomitant]
     Active Substance: ONDANSETRON HYDROCHLORIDE
  12. PROCHLORPERAZINE [Concomitant]
     Active Substance: PROCHLORPERAZINE
  13. TAMSULOSIN [Concomitant]
     Active Substance: TAMSULOSIN
  14. CALCIUM CARBONATE [Concomitant]
     Active Substance: CALCIUM CARBONATE
  15. VITAMIN D3 [Concomitant]
     Active Substance: CHOLECALCIFEROL
  16. Biotene dry mouth [Concomitant]
  17. XYLITOL [Concomitant]
     Active Substance: XYLITOL
  18. LISINOPRIL [Concomitant]
     Active Substance: LISINOPRIL
  19. POTASSIUM CHLORIDE [Concomitant]
     Active Substance: POTASSIUM CHLORIDE

REACTIONS (7)
  - Malignant neoplasm progression [Fatal]
  - Myocardial infarction [Recovered/Resolved]
  - Acute kidney injury [Recovered/Resolved]
  - Abdominal pain [Recovered/Resolved]
  - Urinary retention [Recovered/Resolved]
  - Aspartate aminotransferase increased [Unknown]
  - Alanine aminotransferase increased [Unknown]

NARRATIVE: CASE EVENT DATE: 20231121
